FAERS Safety Report 7091306-9 (Version None)
Quarter: 2010Q4

REPORT INFORMATION
  Report Type: 
  Country: None (occurrence: None)
  Receive Date: 20101109
  Receipt Date: 20101102
  Transmission Date: 20110411
  Serious: Yes (Death, Other)
  Sender: FDA-Public Use
  Company Number: PHHY2010HU73845

PATIENT
  Age: 66 Year
  Sex: Female

DRUGS (3)
  1. OCTREOTIDE ACETATE [Suspect]
     Indication: ACROMEGALY
     Dosage: 20 MG EVERY 28 DAYS
  2. OCTREOTIDE ACETATE [Suspect]
     Dosage: 30 MG EVERY 28 DAYS
     Dates: start: 20031101, end: 20040701
  3. LETROZOLE [Concomitant]

REACTIONS (25)
  - AMYOTROPHIC LATERAL SCLEROSIS [None]
  - ASPIRATION [None]
  - BILIARY COLIC [None]
  - BREAST CANCER [None]
  - CARDIOPULMONARY FAILURE [None]
  - CHOLECYSTECTOMY [None]
  - CHOLELITHIASIS [None]
  - DYSARTHRIA [None]
  - DYSPHAGIA [None]
  - DYSPNOEA [None]
  - FATIGUE [None]
  - GASTROSTOMY [None]
  - GLIOSIS [None]
  - LYMPHADENECTOMY [None]
  - MALIGNANT TUMOUR EXCISION [None]
  - MUSCLE CONTRACTIONS INVOLUNTARY [None]
  - MUSCULAR WEAKNESS [None]
  - PITUITARY TUMOUR REMOVAL [None]
  - PROGRESSIVE BULBAR PALSY [None]
  - RESPIRATORY ARREST [None]
  - SALIVARY HYPERSECRETION [None]
  - SECONDARY HYPOTHYROIDISM [None]
  - TONGUE ATROPHY [None]
  - TONGUE PARALYSIS [None]
  - WEIGHT DECREASED [None]
